FAERS Safety Report 15387231 (Version 1)
Quarter: 2018Q3

REPORT INFORMATION
  Report Type: Spontaneous
  Country: US (occurrence: US)
  Receive Date: 20180914
  Receipt Date: 20180914
  Transmission Date: 20181010
  Serious: No
  Sender: FDA-Public Use
  Company Number: US-SA-2018SA249815

PATIENT
  Age: 84 Year
  Sex: Male

DRUGS (2)
  1. DULCOEASE [Concomitant]
     Active Substance: DOCUSATE SODIUM
  2. DULCOLAX NOS [Suspect]
     Active Substance: BISACODYL OR DOCUSATE SODIUM

REACTIONS (2)
  - Drug ineffective [Unknown]
  - Infrequent bowel movements [Unknown]
